FAERS Safety Report 11696244 (Version 1)
Quarter: 2015Q4

REPORT INFORMATION
  Report Type: Spontaneous
  Country: FR (occurrence: FR)
  Receive Date: 20151104
  Receipt Date: 20151104
  Transmission Date: 20160304
  Serious: Yes (Other)
  Sender: FDA-Public Use
  Company Number: FR-009507513-1511FRA001149

PATIENT
  Age: 53 Year
  Sex: Male

DRUGS (2)
  1. AERIUS [Suspect]
     Active Substance: DESLORATADINE
     Dosage: 1 TABLET, ONCE
     Route: 048
     Dates: start: 20150926, end: 20150926
  2. AERIUS [Suspect]
     Active Substance: DESLORATADINE
     Dosage: 2 TABLETS, Q4H
     Route: 048
     Dates: start: 20150925, end: 20150925

REACTIONS (2)
  - Overdose [Recovered/Resolved]
  - Somnolence [Recovered/Resolved]

NARRATIVE: CASE EVENT DATE: 20150926
